FAERS Safety Report 25746612 (Version 1)
Quarter: 2025Q3

REPORT INFORMATION
  Report Type: Report from Study
  Country: CA (occurrence: CA)
  Receive Date: 20250901
  Receipt Date: 20250901
  Transmission Date: 20251020
  Serious: Yes (Other)
  Sender: TAKEDA
  Company Number: CA-TAKEDA-2025TUS075894

PATIENT
  Sex: Female

DRUGS (12)
  1. VEDOLIZUMAB [Suspect]
     Active Substance: VEDOLIZUMAB
     Indication: Colitis ulcerative
  2. ASACOL [Concomitant]
     Active Substance: MESALAMINE
     Dosage: 1200 MILLIGRAM, QD
  3. IMURAN [Concomitant]
     Active Substance: AZATHIOPRINE
     Dosage: 175 MILLIGRAM, QD
  4. Salofalk [Concomitant]
  5. SYMBICORT [Concomitant]
     Active Substance: BUDESONIDE\FORMOTEROL FUMARATE DIHYDRATE
     Indication: Chronic obstructive pulmonary disease
  6. BISOPROLOL [Concomitant]
     Active Substance: BISOPROLOL
     Indication: Hypertension
  7. ASPIRIN [Concomitant]
     Active Substance: ASPIRIN
  8. PANTOPRAZOLE [Concomitant]
     Active Substance: PANTOPRAZOLE
     Indication: Gastrooesophageal reflux disease
  9. AZATHIOPRINE [Concomitant]
     Active Substance: AZATHIOPRINE
  10. ASPIRIN [Concomitant]
     Active Substance: ASPIRIN
  11. FUROSEMIDE [Concomitant]
     Active Substance: FUROSEMIDE
  12. PINAVERIUM BROMIDE [Concomitant]
     Active Substance: PINAVERIUM BROMIDE
     Dosage: 500 MILLIGRAM, TID

REACTIONS (1)
  - Diabetes mellitus [Unknown]
